FAERS Safety Report 9120977 (Version 1)
Quarter: 2013Q1

REPORT INFORMATION
  Report Type: Spontaneous
  Country: US (occurrence: US)
  Receive Date: 20130226
  Receipt Date: 20130226
  Transmission Date: 20140127
  Serious: No
  Sender: FDA-Public Use
  Company Number: US-PFIZER INC-2013068172

PATIENT
  Sex: Female

DRUGS (2)
  1. ADVIL [Suspect]
     Indication: PAIN
     Dosage: UNK
     Route: 048
  2. ADVIL [Suspect]
     Dosage: 600 MG (THREE CAPSULES OF 200 MG), UNK
     Route: 048

REACTIONS (3)
  - Hypersensitivity [Unknown]
  - Rash [Unknown]
  - Diarrhoea [Unknown]
